FAERS Safety Report 23941449 (Version 1)
Quarter: 2024Q2

REPORT INFORMATION
  Report Type: Spontaneous
  Country: US (occurrence: None)
  Receive Date: 20240604
  Receipt Date: 20240604
  Transmission Date: 20240715
  Serious: Yes (Hospitalization)
  Sender: FDA-Public Use
  Company Number: None

PATIENT
  Age: 49 Year
  Sex: Female

DRUGS (14)
  1. AMBRISENTAN [Suspect]
     Active Substance: AMBRISENTAN
     Indication: Pulmonary hypertension
     Dosage: FREQUENCY : DAILY;?
     Route: 048
     Dates: start: 20230308
  2. TADALAFIL [Concomitant]
     Active Substance: TADALAFIL
  3. MYCOPHENOLIC ACID [Concomitant]
     Active Substance: MYCOPHENOLIC ACID
  4. POTASSIUM CHLORIDE [Concomitant]
     Active Substance: POTASSIUM CHLORIDE
  5. HYDROXYCHLOROQUINE [Concomitant]
     Active Substance: HYDROXYCHLOROQUINE
  6. CARVEDILOL [Concomitant]
     Active Substance: CARVEDILOL
  7. BUMETANIDE [Concomitant]
     Active Substance: BUMETANIDE
  8. ASPIRIN [Concomitant]
     Active Substance: ASPIRIN
  9. VITAMIN D3 [Concomitant]
     Active Substance: CHOLECALCIFEROL
  10. VITAMIN B12 [Concomitant]
     Active Substance: CYANOCOBALAMIN
  11. PINK BISMUTH [Concomitant]
     Active Substance: BISMUTH SUBSALICYLATE
  12. OMEPRAZOLE [Concomitant]
     Active Substance: DONEPEZIL HYDROCHLORIDE\OMEPRAZOLE\OMEPRAZOLE MAGNESIUM
  13. GABAPENTIN [Concomitant]
     Active Substance: GABAPENTIN
  14. VELETRI [Suspect]
     Active Substance: EPOPROSTENOL

REACTIONS (5)
  - Acute respiratory failure [None]
  - Hypervolaemia [None]
  - Pneumonia [None]
  - Hypotension [None]
  - Haemodialysis [None]

NARRATIVE: CASE EVENT DATE: 20240412
